FAERS Safety Report 7334460-3 (Version None)
Quarter: 2011Q1

REPORT INFORMATION
  Report Type: 
  Country: None (occurrence: None)
  Receive Date: 20110307
  Receipt Date: 20110222
  Transmission Date: 20110831
  Serious: Yes (Hospitalization, Disabling, Other)
  Sender: FDA-Public Use
  Company Number: SE-AMGEN-SWESP2011003553

PATIENT
  Age: 34 Year
  Sex: Female
  Weight: 55 kg

DRUGS (9)
  1. KESTINE [Concomitant]
     Dosage: 10 MG, AS NEEDED
  2. CITODON                            /00116401/ [Concomitant]
     Dosage: 1-2 TABLETS AS NEEDED
  3. PRONAXEN [Concomitant]
     Dosage: 500 UNK,AS NEEDED
  4. ETANERCEPT [Suspect]
     Indication: JUVENILE ARTHRITIS
     Dosage: 50 MG, QWK
     Route: 058
     Dates: start: 20090309, end: 20101227
  5. DUOTRAV [Concomitant]
     Dosage: UNK
  6. FOLACIN                            /00024201/ [Concomitant]
     Dosage: UNK
  7. OMEPRAZOL                          /00661201/ [Concomitant]
     Dosage: 20 MG, 1X/DAY
  8. ACETAMINOPHEN [Concomitant]
     Dosage: UNK
  9. METHOTREXATE [Concomitant]
     Dosage: 2.5 MG, UNK

REACTIONS (2)
  - MACULAR OEDEMA [None]
  - VISUAL IMPAIRMENT [None]
